FAERS Safety Report 4699667-2 (Version None)
Quarter: 2005Q2

REPORT INFORMATION
  Report Type: 
  Country: None (occurrence: None)
  Receive Date: 20050623
  Receipt Date: 20050610
  Transmission Date: 20051028
  Serious: Yes (Hospitalization, Other)
  Sender: FDA-Public Use
  Company Number: 2005090089

PATIENT
  Age: 50 Year
  Sex: Female
  Weight: 76 kg

DRUGS (2)
  1. AROMASIN [Suspect]
     Indication: BREAST CANCER
     Dosage: 25 MG (25 MG), ORAL
     Route: 048
     Dates: start: 20030122
  2. OMEPRAZOLE [Concomitant]

REACTIONS (5)
  - ACCIDENT AT HOME [None]
  - FEMUR FRACTURE [None]
  - KNEE DEFORMITY [None]
  - MULTIPLE FRACTURES [None]
  - RIB FRACTURE [None]
